FAERS Safety Report 7939582-1 (Version None)
Quarter: 2011Q4

REPORT INFORMATION
  Report Type: 
  Country: None (occurrence: None)
  Receive Date: 20111125
  Receipt Date: 20111111
  Transmission Date: 20120403
  Serious: Yes (Death)
  Sender: FDA-Public Use
  Company Number: JP-AMGEN-JPNSP2011060869

PATIENT
  Age: 15 Year
  Sex: Female

DRUGS (9)
  1. FAMOTIDINE [Concomitant]
     Dosage: UNCERTAINTY
     Route: 065
  2. RECOMODULIN [Concomitant]
     Dosage: UNCERTAINTY
     Route: 065
  3. GRAN [Concomitant]
     Dosage: UNCERTAINTY
     Route: 065
  4. ROMIPLATE [Suspect]
     Indication: ACUTE LYMPHOCYTIC LEUKAEMIA
     Dosage: 125 MUG/KG, UNK
     Route: 058
     Dates: start: 20111020, end: 20111103
  5. VANCOMYCIN [Concomitant]
     Dosage: UNCERTAINTY
     Route: 065
  6. MEROPENEM [Concomitant]
     Dosage: UNCERTAINTY
     Route: 065
  7. FUNGUARD [Concomitant]
     Dosage: UNCERTAINTY
     Route: 065
  8. HUMULIN N [Concomitant]
     Dosage: UNCERTAINTY
     Route: 065
  9. PREDNISOLONE [Concomitant]
     Dosage: UNCERTAINTY
     Route: 065

REACTIONS (2)
  - SEPSIS [None]
  - SOFT TISSUE INFECTION [None]
